FAERS Safety Report 5258162-2 (Version None)
Quarter: 2007Q1

REPORT INFORMATION
  Report Type: 
  Country: None (occurrence: None)
  Receive Date: 20070307
  Receipt Date: 20070224
  Transmission Date: 20070707
  Serious: Yes (Other)
  Sender: FDA-Public Use
  Company Number: US-PFIZER INC-2007016073

PATIENT
  Sex: Female

DRUGS (7)
  1. DETROL LA [Suspect]
     Indication: HYPERTONIC BLADDER
  2. THYROID HORMONES [Concomitant]
     Indication: THYROID DISORDER
  3. ALL OTHER THERAPEUTIC PRODUCTS [Concomitant]
     Indication: GASTROOESOPHAGEAL REFLUX DISEASE
  4. ANTIHYPERTENSIVES [Concomitant]
     Indication: HYPERTENSION
  5. LASIX [Concomitant]
  6. POTASSIUM ACETATE [Concomitant]
  7. ANALGESICS [Concomitant]
     Indication: PAIN

REACTIONS (4)
  - DYSURIA [None]
  - SURGERY [None]
  - URINARY TRACT INFECTION [None]
  - URINE OUTPUT DECREASED [None]
